FAERS Safety Report 11425276 (Version 1)
Quarter: 2015Q3

REPORT INFORMATION
  Report Type: Spontaneous
  Country: US (occurrence: US)
  Receive Date: 20150821
  Receipt Date: 20150821
  Transmission Date: 20151125
  Serious: No
  Sender: FDA-Public Use
  Company Number: US-ELI_LILLY_AND_COMPANY-US201103008001

PATIENT
  Age: 91 Year
  Sex: Male

DRUGS (1)
  1. HUMULIN 70/30 [Suspect]
     Active Substance: INSULIN HUMAN
     Dosage: UNK, UNKNOWN
     Dates: start: 201103

REACTIONS (3)
  - Pruritus [Unknown]
  - Insomnia [Unknown]
  - Rash [Unknown]

NARRATIVE: CASE EVENT DATE: 201103
